FAERS Safety Report 12638720 (Version 1)
Quarter: 2016Q3

REPORT INFORMATION
  Report Type: Spontaneous
  Country: US (occurrence: US)
  Receive Date: 20160809
  Receipt Date: 20160809
  Transmission Date: 20161109
  Serious: Yes (Hospitalization)
  Sender: FDA-Public Use
  Company Number: US-SA-2016SA140509

PATIENT
  Age: 67 Year
  Sex: Female

DRUGS (3)
  1. LOVENOX [Suspect]
     Active Substance: ENOXAPARIN SODIUM
     Indication: PULMONARY EMBOLISM
     Dosage: DOSE:40 MILLIGRAM(S)/MILLILITRE
     Route: 051
     Dates: start: 201603
  2. PREDNISONE. [Concomitant]
     Active Substance: PREDNISONE
     Route: 065
  3. LOVENOX [Suspect]
     Active Substance: ENOXAPARIN SODIUM
     Indication: DEEP VEIN THROMBOSIS
     Dosage: DOSE:40 MILLIGRAM(S)/MILLILITRE
     Route: 051
     Dates: start: 201603

REACTIONS (6)
  - Spinal compression fracture [Unknown]
  - Musculoskeletal chest pain [Unknown]
  - Back pain [Unknown]
  - Cervical vertebral fracture [Unknown]
  - Pain [Unknown]
  - Contusion [Unknown]
